FAERS Safety Report 25332776 (Version 1)
Quarter: 2025Q2

REPORT INFORMATION
  Report Type: Spontaneous
  Country: JP (occurrence: JP)
  Receive Date: 20250519
  Receipt Date: 20250519
  Transmission Date: 20250717
  Serious: Yes (Other)
  Sender: ORGANON
  Company Number: JP-ORGANON-O2505JPN002538

PATIENT
  Age: 21 Year
  Sex: Female

DRUGS (2)
  1. DESLORATADINE [Suspect]
     Active Substance: DESLORATADINE
     Indication: Rhinitis allergic
     Route: 048
     Dates: end: 2024
  2. DESLORATADINE [Suspect]
     Active Substance: DESLORATADINE
     Route: 048
     Dates: end: 2025

REACTIONS (2)
  - Internal haemorrhage [Recovered/Resolved]
  - Internal haemorrhage [Recovered/Resolved]

NARRATIVE: CASE EVENT DATE: 20240101
